FAERS Safety Report 5301289-7 (Version None)
Quarter: 2007Q2

REPORT INFORMATION
  Report Type: 
  Country: None (occurrence: None)
  Receive Date: 20070411
  Receipt Date: 20070326
  Transmission Date: 20071010
  Serious: Yes (Other)
  Sender: FDA-Public Use
  Company Number: A-CH2007-14701

PATIENT
  Age: 66 Year
  Sex: Female

DRUGS (7)
  1. TRACLEER [Suspect]
     Indication: PULMONARY HYPERTENSION
     Dosage: SEE IMAGE
     Route: 048
     Dates: start: 20060801, end: 20060901
  2. TRACLEER [Suspect]
     Indication: PULMONARY HYPERTENSION
     Dosage: SEE IMAGE
     Route: 048
     Dates: end: 20070301
  3. TRACLEER [Suspect]
     Indication: PULMONARY HYPERTENSION
     Dosage: SEE IMAGE
     Route: 048
     Dates: start: 20060901
  4. METHOTREXAT (METHOTREXATE) [Concomitant]
  5. DICLOFENAC (DICLOFENAC) [Concomitant]
  6. DIAMOX [Concomitant]
  7. FOSAMAX [Concomitant]

REACTIONS (2)
  - CHOLELITHIASIS [None]
  - HYPOTENSION [None]
